FAERS Safety Report 7906330-0 (Version None)
Quarter: 2011Q4

REPORT INFORMATION
  Report Type: 
  Country: None (occurrence: None)
  Receive Date: 20111109
  Receipt Date: 20111109
  Transmission Date: 20120403
  Serious: Yes (Other)
  Sender: FDA-Public Use
  Company Number: None

PATIENT

DRUGS (1)
  1. LEVOTHYROXINE SODIUM [Suspect]
     Indication: HYPOTHYROIDISM
     Dosage: 125 MCG QD PO
     Route: 048
     Dates: start: 20100601, end: 20101101

REACTIONS (1)
  - BLOOD THYROID STIMULATING HORMONE INCREASED [None]
